FAERS Safety Report 25025753 (Version 3)
Quarter: 2025Q2

REPORT INFORMATION
  Report Type: Report from Study
  Country: BR (occurrence: BR)
  Receive Date: 20250301
  Receipt Date: 20250416
  Transmission Date: 20250717
  Serious: Yes (Other)
  Sender: JOHNSON AND JOHNSON
  Company Number: BR-JNJFOC-20250160915

PATIENT
  Age: 57 Year
  Sex: Female
  Weight: 50 kg

DRUGS (6)
  1. SIMPONI [Suspect]
     Active Substance: GOLIMUMAB
     Indication: Rheumatoid arthritis
     Route: 058
  2. SIMPONI [Suspect]
     Active Substance: GOLIMUMAB
     Route: 058
  3. SIMPONI [Suspect]
     Active Substance: GOLIMUMAB
     Indication: Rheumatoid arthritis
     Route: 058
  4. SIMPONI [Suspect]
     Active Substance: GOLIMUMAB
  5. CHLOROQUINE [Suspect]
     Active Substance: CHLOROQUINE
     Indication: Product used for unknown indication
     Dates: start: 2004, end: 2019
  6. DIPIRONA [METAMIZOLE MAGNESIUM] [Concomitant]
     Indication: Hepatitis B

REACTIONS (8)
  - Acquired pigmented retinopathy [Unknown]
  - Rheumatoid arthritis [Recovered/Resolved]
  - Hepatitis B [Recovering/Resolving]
  - Osteoarthritis [Not Recovered/Not Resolved]
  - Off label use [Unknown]
  - Psoriasis [Unknown]
  - Bursitis [Unknown]
  - Osteoporosis [Unknown]

NARRATIVE: CASE EVENT DATE: 20190101
